FAERS Safety Report 13451549 (Version 4)
Quarter: 2017Q4

REPORT INFORMATION
  Report Type: Spontaneous
  Country: US (occurrence: US)
  Receive Date: 20170418
  Receipt Date: 20171106
  Transmission Date: 20180320
  Serious: Yes (Life-Threatening, Other)
  Sender: FDA-Public Use
  Company Number: US-AUROBINDO-AUR-APL-2017-32638

PATIENT

DRUGS (1)
  1. LOPERAMIDE TABLET [Suspect]
     Active Substance: LOPERAMIDE
     Indication: PRODUCT USED FOR UNKNOWN INDICATION
     Dosage: INGESTION OF APPROXIMATELY 200 TABLETS OF LOPERAMIDE 2MG
     Route: 048

REACTIONS (8)
  - Ventricular arrhythmia [Unknown]
  - Suicide attempt [Unknown]
  - Toxicity to various agents [Unknown]
  - Intentional overdose [Unknown]
  - Cardiomyopathy [Unknown]
  - Stress cardiomyopathy [Unknown]
  - Electrocardiogram QT prolonged [Recovered/Resolved]
  - Loss of consciousness [Unknown]
